FAERS Safety Report 15373010 (Version 2)
Quarter: 2018Q3

REPORT INFORMATION
  Report Type: Spontaneous
  Country: US (occurrence: US)
  Receive Date: 20180912
  Receipt Date: 20180918
  Transmission Date: 20181010
  Serious: No
  Sender: FDA-Public Use
  Company Number: US-PHARMING-PHAUS2018000600

PATIENT

DRUGS (1)
  1. RUCONEST [Suspect]
     Active Substance: HUMAN C1-ESTERASE INHIBITOR
     Indication: HEREDITARY ANGIOEDEMA
     Dosage: 3250 IU, PRN
     Route: 042
     Dates: start: 20180618

REACTIONS (1)
  - Vascular access complication [Unknown]

NARRATIVE: CASE EVENT DATE: 20180909
